FAERS Safety Report 12993243 (Version 1)
Quarter: 2016Q4

REPORT INFORMATION
  Report Type: Spontaneous
  Country: US (occurrence: US)
  Receive Date: 20161202
  Receipt Date: 20161202
  Transmission Date: 20170207
  Serious: Yes (Other)
  Sender: FDA-Public Use
  Company Number: US-SUN PHARMACEUTICAL INDUSTRIES LTD-2015US-99359

PATIENT
  Age: 38 Year
  Sex: Female

DRUGS (1)
  1. METHYLDOPA. [Suspect]
     Active Substance: METHYLDOPA
     Indication: HYPERTENSION
     Route: 065

REACTIONS (3)
  - Lupus-like syndrome [Recovered/Resolved]
  - Live birth [Recovered/Resolved]
  - Exposure during pregnancy [Recovered/Resolved]
